FAERS Safety Report 20289988 (Version 1)
Quarter: 2022Q1

REPORT INFORMATION
  Report Type: Spontaneous
  Country: US (occurrence: None)
  Receive Date: 20220103
  Receipt Date: 20220103
  Transmission Date: 20220423
  Serious: Yes (Other)
  Sender: FDA-Public Use
  Company Number: None

PATIENT
  Age: 63 Year
  Sex: Female
  Weight: 63.45 kg

DRUGS (1)
  1. SOTROVIMAB [Suspect]
     Active Substance: SOTROVIMAB
     Indication: COVID-19
     Dosage: OTHER FREQUENCY : ONE-TIME TREATMENT;?
     Route: 042
     Dates: start: 20211226, end: 20211226

REACTIONS (6)
  - Urticaria [None]
  - Scab [None]
  - Skin disorder [None]
  - Diarrhoea [None]
  - Headache [None]
  - Rash [None]

NARRATIVE: CASE EVENT DATE: 20211227
